FAERS Safety Report 9311740 (Version 1)
Quarter: 2013Q2

REPORT INFORMATION
  Report Type: Spontaneous
  Country: US (occurrence: US)
  Receive Date: 20130528
  Receipt Date: 20130528
  Transmission Date: 20140414
  Serious: No
  Sender: FDA-Public Use
  Company Number: US-PFIZER INC-2013158362

PATIENT
  Age: 86 Year
  Sex: Female

DRUGS (4)
  1. BOSULIF [Suspect]
     Dosage: 500 MG, 1X/DAY
     Dates: start: 201305, end: 201305
  2. ALLEGRA [Concomitant]
     Dosage: 60 MG, UNK
  3. ASPIRIN [Concomitant]
     Dosage: 81 MG, UNK
  4. DIAZEPAM [Concomitant]
     Dosage: 5 MG, UNK

REACTIONS (3)
  - Nausea [Recovered/Resolved]
  - Diarrhoea [Recovered/Resolved]
  - Abdominal pain upper [Recovered/Resolved]
